APPROVED DRUG PRODUCT: NAFTIFINE HYDROCHLORIDE
Active Ingredient: NAFTIFINE HYDROCHLORIDE
Strength: 2%
Dosage Form/Route: CREAM;TOPICAL
Application: A210038 | Product #001 | TE Code: AB
Applicant: XIROMED PHARMA ESPANA SL
Approved: Sep 22, 2020 | RLD: No | RS: No | Type: RX